FAERS Safety Report 16704164 (Version 2)
Quarter: 2019Q3

REPORT INFORMATION
  Report Type: Spontaneous
  Country: ES (occurrence: ES)
  Receive Date: 20190814
  Receipt Date: 20190909
  Transmission Date: 20191004
  Serious: Yes (Other)
  Sender: FDA-Public Use
  Company Number: ES-MYLANLABS-2019M1076385

PATIENT
  Age: 25 Year
  Sex: Female

DRUGS (7)
  1. THIOPENTAL SODIUM. [Suspect]
     Active Substance: THIOPENTAL SODIUM
     Indication: ANAESTHESIA
     Dosage: 200 MILLIGRAM
     Route: 065
  2. CLOZAPINE. [Suspect]
     Active Substance: CLOZAPINE
     Dosage: 200 MILLIGRAM, QD
     Route: 065
  3. ATROPINE. [Suspect]
     Active Substance: ATROPINE
     Indication: ANAESTHESIA
     Dosage: 0.5 MILLIGRAM
     Route: 065
  4. ARIPIPRAZOLE. [Suspect]
     Active Substance: ARIPIPRAZOLE
     Dosage: 30 MILLIGRAM, QD
     Route: 065
  5. ARIPIPRAZOLE. [Suspect]
     Active Substance: ARIPIPRAZOLE
     Indication: SCHIZOPHRENIA
     Dosage: 10 MILLIGRAM, QD
     Route: 065
  6. CLOZAPINE. [Suspect]
     Active Substance: CLOZAPINE
     Indication: SCHIZOPHRENIA
     Dosage: 250 MILLIGRAM, QD
     Route: 065
  7. SUCCINYLCHOLINE [Suspect]
     Active Substance: SUCCINYLCHOLINE
     Indication: ANAESTHESIA
     Dosage: 50 MILLIGRAM
     Route: 065

REACTIONS (8)
  - Intentional self-injury [Unknown]
  - Psychotic symptom [Unknown]
  - Somnolence [Recovering/Resolving]
  - Aggression [Unknown]
  - Dizziness [Recovering/Resolving]
  - Condition aggravated [Unknown]
  - Maternal exposure during pregnancy [Unknown]
  - Hallucination, auditory [Unknown]
